FAERS Safety Report 9470186 (Version 1)
Quarter: 2013Q3

REPORT INFORMATION
  Report Type: Spontaneous
  Country: US (occurrence: US)
  Receive Date: 20130822
  Receipt Date: 20130822
  Transmission Date: 20140515
  Serious: No
  Sender: FDA-Public Use
  Company Number: US-COVIDIEN/TYCO HEALTHCARE/MALLINCKRODT-T201303818

PATIENT
  Age: 33 Year
  Sex: Male

DRUGS (1)
  1. GABLOFEN [Suspect]
     Indication: MUSCLE SPASTICITY
     Dosage: 225.2 MCG PER DAY
     Route: 037

REACTIONS (5)
  - Seroma [Unknown]
  - Implant site fibrosis [Unknown]
  - Implant site irritation [Unknown]
  - Implant site mass [Unknown]
  - Device failure [Unknown]
